FAERS Safety Report 4749650-3 (Version None)
Quarter: 2005Q3

REPORT INFORMATION
  Report Type: 
  Country: None (occurrence: None)
  Receive Date: 20050822
  Receipt Date: 20050325
  Transmission Date: 20060218
  Serious: Yes (Hospitalization, Other)
  Sender: FDA-Public Use
  Company Number: US-MERCK-0503USA05000

PATIENT
  Age: 70 Year
  Sex: Female
  Weight: 77 kg

DRUGS (9)
  1. VIOXX [Suspect]
     Indication: MONARTHRITIS
     Route: 048
     Dates: start: 20020417, end: 20040524
  2. VIOXX [Suspect]
     Route: 048
     Dates: start: 20020417, end: 20040524
  3. VIOXX [Suspect]
     Route: 048
     Dates: start: 20021014
  4. PROTONIX [Concomitant]
     Indication: STOMACH DISCOMFORT
     Route: 065
     Dates: start: 20010101
  5. PROTONIX [Concomitant]
     Indication: ULCER
     Route: 065
     Dates: start: 20010101
  6. NORVASC [Concomitant]
     Indication: BLOOD PRESSURE INCREASED
     Route: 065
  7. MICARDIS [Concomitant]
     Indication: BLOOD PRESSURE INCREASED
     Route: 065
  8. ACTONEL [Concomitant]
     Route: 065
  9. MIRTAZAPINE [Concomitant]
     Route: 065

REACTIONS (41)
  - BACK PAIN [None]
  - BLOOD CHOLESTEROL INCREASED [None]
  - BLOOD POTASSIUM DECREASED [None]
  - BLOOD POTASSIUM INCREASED [None]
  - BLOOD PRESSURE INADEQUATELY CONTROLLED [None]
  - BREAST TENDERNESS [None]
  - BRONCHITIS [None]
  - CAROTID ARTERY ATHEROMA [None]
  - CEREBROVASCULAR ACCIDENT [None]
  - CHRONIC OBSTRUCTIVE PULMONARY DISEASE [None]
  - CORONARY ARTERY DISEASE [None]
  - DEPRESSION [None]
  - DILATATION ATRIAL [None]
  - DYSPNOEA EXERTIONAL [None]
  - ELECTROCARDIOGRAM QT CORRECTED INTERVAL PROLONGED [None]
  - ELECTROCARDIOGRAM ST-T CHANGE [None]
  - EMPHYSEMA [None]
  - EPISTAXIS [None]
  - FATIGUE [None]
  - HAEMORRHAGE [None]
  - HYPERTENSION [None]
  - HYPOKALAEMIA [None]
  - HYPOTENSION [None]
  - HYPOXIA [None]
  - INSOMNIA [None]
  - MENINGIOMA [None]
  - METRORRHAGIA [None]
  - MITRAL VALVE INCOMPETENCE [None]
  - OEDEMA PERIPHERAL [None]
  - OSTEOPENIA [None]
  - PHARYNX DISCOMFORT [None]
  - POSTNASAL DRIP [None]
  - PRURITUS [None]
  - RENAL FAILURE [None]
  - SKIN LACERATION [None]
  - SKIN ULCER [None]
  - SPINAL OSTEOARTHRITIS [None]
  - STRESS [None]
  - TRICUSPID VALVE INCOMPETENCE [None]
  - VENOUS INSUFFICIENCY [None]
  - VENTRICULAR HYPERTROPHY [None]
